FAERS Safety Report 5133793-9 (Version None)
Quarter: 2006Q4

REPORT INFORMATION
  Report Type: 
  Country: None (occurrence: None)
  Receive Date: 20061018
  Receipt Date: 20061011
  Transmission Date: 20070319
  Serious: Yes (Other)
  Sender: FDA-Public Use
  Company Number: 148601USA

PATIENT
  Age: 14 Day
  Sex: Female

DRUGS (3)
  1. CARBOPLATIN [Suspect]
     Dosage: (20 MG)
  2. ETOPOSIDE [Suspect]
  3. VINCRISTINE [Suspect]

REACTIONS (10)
  - CALCINOSIS [None]
  - DRUG TOXICITY [None]
  - EYE EXCISION [None]
  - GLIOSIS [None]
  - ILL-DEFINED DISORDER [None]
  - INFLAMMATION [None]
  - NECROSIS ISCHAEMIC [None]
  - OCULAR NEOPLASM [None]
  - OPTIC ATROPHY [None]
  - OPTIC NERVE DISORDER [None]
